FAERS Safety Report 8912858 (Version 3)
Quarter: 2015Q3

REPORT INFORMATION
  Report Type: Report from Study
  Country: US (occurrence: US)
  Receive Date: 20121116
  Receipt Date: 20150702
  Transmission Date: 20151125
  Serious: Yes (Death, Hospitalization, Other)
  Sender: FDA-Public Use
  Company Number: US-ROCHE-CID000000002222032

PATIENT
  Age: 6 Year
  Sex: Female
  Weight: 19.79 kg

DRUGS (4)
  1. IRINOTECAN [Concomitant]
     Active Substance: IRINOTECAN
     Indication: BRAIN STEM GLIOMA
     Dosage: DAY 1 AND 15 OF 28 DAYS CYCLE
     Route: 042
     Dates: start: 20120315, end: 20121011
  2. DEXAMETHASONE. [Concomitant]
     Active Substance: DEXAMETHASONE
     Indication: BRAIN STEM GLIOMA
     Route: 048
     Dates: end: 20121101
  3. OMEPRAZOLE. [Concomitant]
     Active Substance: OMEPRAZOLE
     Route: 048
     Dates: end: 20121101
  4. BEVACIZUMAB [Suspect]
     Active Substance: BEVACIZUMAB
     Indication: MALIGNANT GLIOMA
     Dosage: DAY 1 AND 15 OF 28 DAY CYCLE
     Route: 042
     Dates: start: 20120105, end: 20121011

REACTIONS (7)
  - Seizure [Not Recovered/Not Resolved]
  - Ataxia [Unknown]
  - Mental status changes [Unknown]
  - Death [Fatal]
  - Disease progression [Fatal]
  - Choking [Unknown]
  - Peripheral motor neuropathy [Unknown]

NARRATIVE: CASE EVENT DATE: 20121031
